FAERS Safety Report 25191228 (Version 1)
Quarter: 2025Q2

REPORT INFORMATION
  Report Type: Spontaneous
  Country: FR (occurrence: FR)
  Receive Date: 20250411
  Receipt Date: 20250411
  Transmission Date: 20250716
  Serious: Yes (Hospitalization)
  Sender: MERCK SHARP AND DOHME
  Company Number: None

PATIENT
  Age: 27 Year
  Sex: Female
  Weight: 100 kg

DRUGS (9)
  1. CASPOFUNGIN [Suspect]
     Active Substance: CASPOFUNGIN
     Indication: Fungaemia
     Route: 042
     Dates: start: 20240830, end: 20240911
  2. KEPPRA [Concomitant]
     Active Substance: LEVETIRACETAM
  3. PROPRANOLOL [Concomitant]
     Active Substance: PROPRANOLOL HYDROCHLORIDE
  4. NIMBEX [Concomitant]
     Active Substance: CISATRACURIUM BESYLATE
  5. SUFENTANIL [Concomitant]
     Active Substance: SUFENTANIL
  6. MIDAZOLAM [Concomitant]
     Active Substance: MIDAZOLAM
  7. VANCOMYCIN [Suspect]
     Active Substance: VANCOMYCIN
     Indication: Bacteraemia
     Route: 042
     Dates: start: 20240903, end: 20240915
  8. LACOSAMIDE [Concomitant]
     Active Substance: LACOSAMIDE
  9. LOVENOX [Concomitant]
     Active Substance: ENOXAPARIN SODIUM

REACTIONS (1)
  - Cholestasis [Recovered/Resolved]

NARRATIVE: CASE EVENT DATE: 20240906
